FAERS Safety Report 6765187-4 (Version None)
Quarter: 2010Q2

REPORT INFORMATION
  Report Type: 
  Country: None (occurrence: None)
  Receive Date: 20100610
  Receipt Date: 20100610
  Transmission Date: 20101027
  Serious: Yes (Other)
  Sender: FDA-Public Use
  Company Number: None

PATIENT
  Age: 51 Year
  Sex: Female
  Weight: 58.0604 kg

DRUGS (1)
  1. SULFAMETHOXAZOLE AND TRIMETHOPRIM DOUBLE STRENGTH [Suspect]
     Indication: CYST
     Dosage: ONE TABLET TWICE DAILY PO
     Route: 048
     Dates: start: 20100527, end: 20100605

REACTIONS (1)
  - HYPERSENSITIVITY [None]
